FAERS Safety Report 4579748-4 (Version None)
Quarter: 2005Q1

REPORT INFORMATION
  Report Type: 
  Country: None (occurrence: None)
  Receive Date: 20050210
  Receipt Date: 20050203
  Transmission Date: 20050727
  Serious: Yes (Life-Threatening)
  Sender: FDA-Public Use
  Company Number: 2005AP00789

PATIENT
  Age: 26 Year
  Sex: Male
  Weight: 100 kg

DRUGS (3)
  1. SEROQUEL [Suspect]
     Indication: SCHIZOPHRENIA
     Dosage: 400 MG DAILY PO
     Route: 048
     Dates: start: 20031008, end: 20040806
  2. SOLIAN [Suspect]
     Dosage: 1 G
     Dates: start: 20031008, end: 20040806
  3. VALPROATE SODIUM [Concomitant]

REACTIONS (3)
  - ASTHENIA [None]
  - EXERCISE CAPACITY DECREASED [None]
  - FATIGUE [None]
